FAERS Safety Report 15104081 (Version 2)
Quarter: 2018Q4

REPORT INFORMATION
  Report Type: Spontaneous
  Country: US (occurrence: US)
  Receive Date: 20180703
  Receipt Date: 20181022
  Transmission Date: 20190204
  Serious: No
  Sender: FDA-Public Use
  Company Number: US-PFIZER INC-2018263982

PATIENT
  Age: 51 Year
  Sex: Male
  Weight: 86.17 kg

DRUGS (2)
  1. METHOTREXATE SODIUM. [Concomitant]
     Active Substance: METHOTREXATE SODIUM
     Indication: PSORIATIC ARTHROPATHY
     Dosage: 15 MG, WEEKLY (6 LITTLE TABLETS)
  2. XELJANZ XR [Suspect]
     Active Substance: TOFACITINIB CITRATE
     Indication: PSORIATIC ARTHROPATHY
     Dosage: 11 MG, 1X/DAY

REACTIONS (5)
  - Loss of personal independence in daily activities [Not Recovered/Not Resolved]
  - Emotional disorder [Not Recovered/Not Resolved]
  - Red blood cell count decreased [Unknown]
  - Oropharyngeal pain [Unknown]
  - Lymphadenopathy [Not Recovered/Not Resolved]

NARRATIVE: CASE EVENT DATE: 201809
